FAERS Safety Report 9602593 (Version 1)
Quarter: 2013Q4

REPORT INFORMATION
  Report Type: Spontaneous
  Country: RU (occurrence: RU)
  Receive Date: 20131007
  Receipt Date: 20131007
  Transmission Date: 20140711
  Serious: Yes (Life-Threatening, Hospitalization)
  Sender: FDA-Public Use
  Company Number: RU-ASTRAZENECA-2013SE73745

PATIENT
  Age: 20672 Day
  Sex: Male

DRUGS (2)
  1. BRILINTA [Suspect]
     Indication: ACUTE MYOCARDIAL INFARCTION
     Route: 048
     Dates: start: 20130917
  2. ASPIRIN (ACETYLSALICYLIC ACID) [Concomitant]
     Route: 048

REACTIONS (4)
  - Thrombosis in device [Recovered/Resolved]
  - Acute myocardial infarction [Unknown]
  - Essential hypertension [Unknown]
  - Nephrolithiasis [Unknown]
